FAERS Safety Report 25847380 (Version 3)
Quarter: 2025Q4

REPORT INFORMATION
  Report Type: Spontaneous
  Country: JP (occurrence: JP)
  Receive Date: 20250925
  Receipt Date: 20251021
  Transmission Date: 20260117
  Serious: Yes (Death, Life-Threatening, Hospitalization, Other)
  Sender: PFIZER
  Company Number: JP-MLMSERVICE-20250915-PI646104-00111-1

PATIENT
  Age: 81 Year
  Sex: Male
  Weight: 52.9 kg

DRUGS (6)
  1. RITUXIMAB [Suspect]
     Active Substance: RITUXIMAB
     Indication: Microscopic polyangiitis
     Dosage: 375 MG/M2, CYCLIC (4 CYCLES AS INDUCTION THERAPY)
  2. SULFAMETHOXAZOLE\TRIMETHOPRIM [Interacting]
     Active Substance: SULFAMETHOXAZOLE\TRIMETHOPRIM
     Indication: Antifungal prophylaxis
     Dosage: 200/40 MG
  3. VONOPRAZAN [Interacting]
     Active Substance: VONOPRAZAN
     Indication: Peptic ulcer
     Dosage: 20 MG, 1X/DAY
  4. AVACOPAN [Interacting]
     Active Substance: AVACOPAN
     Indication: Microscopic polyangiitis
     Dosage: 60 MG, 1X/DAY
  5. PREDNISOLONE [Concomitant]
     Active Substance: PREDNISOLONE
     Indication: Microscopic polyangiitis
     Dosage: 20 MG, 1X/DAY
  6. PREDNISOLONE [Concomitant]
     Active Substance: PREDNISOLONE
     Dosage: 5 MG, 1X/DAY

REACTIONS (8)
  - Vanishing bile duct syndrome [Fatal]
  - Haematological infection [Fatal]
  - Hepatocellular injury [Fatal]
  - Device related infection [Fatal]
  - Klebsiella bacteraemia [Fatal]
  - Klebsiella infection [Fatal]
  - Cytomegalovirus infection reactivation [Fatal]
  - Septic shock [Fatal]
